FAERS Safety Report 15016814 (Version 1)
Quarter: 2018Q2

REPORT INFORMATION
  Report Type: Spontaneous
  Country: DE (occurrence: DE)
  Receive Date: 20180615
  Receipt Date: 20180615
  Transmission Date: 20180711
  Serious: Yes (Hospitalization)
  Sender: FDA-Public Use
  Company Number: DE-TEVA-2018-DE-908388

PATIENT
  Age: 57 Year
  Sex: Female
  Weight: 50 kg

DRUGS (8)
  1. FILGRASTIM HEXAL 30MIO.E./0,5ML [Concomitant]
     Dosage: 0.5 ML, SCHEMA, INJEKTIONS-/INFUSIONSL?SUNG
     Route: 058
  2. FOLINSAEURE [Suspect]
     Active Substance: LEUCOVORIN CALCIUM
     Dosage: 400 MG/M?, SCHEMA, INJEKTIONS-/INFUSIONSL?SUNG
     Route: 042
  3. 5-FLUOROURACIL [Suspect]
     Active Substance: FLUOROURACIL
     Dosage: 400 MG/M?, SCHEMA, INJEKTIONS-/INFUSIONSL?SUNG
     Route: 013
  4. LOPERAMIDE [Concomitant]
     Active Substance: LOPERAMIDE
     Dosage: BEDARF, TABLETTEN
     Route: 048
  5. DEXAMETHASONE. [Concomitant]
     Active Substance: DEXAMETHASONE
     Dosage: 4 MG, SCHEMA, TABLETTEN
     Route: 048
  6. 5-FLUOROURACIL [Suspect]
     Active Substance: FLUOROURACIL
     Dosage: 2400 MG/M?, SCHEMA, INJEKTIONS-/INFUSIONSL?SUNG
     Route: 042
  7. OXALIPLATIN. [Suspect]
     Active Substance: OXALIPLATIN
     Dosage: 85 MG/M?, SCHEMA, INJEKTIONS-/INFUSIONSL?SUNG
     Route: 042
  8. MCP AL 10 [Concomitant]
     Dosage: BEDARF, TABLETTEN
     Route: 048

REACTIONS (11)
  - Oral discomfort [Unknown]
  - Oral pain [Unknown]
  - Pyrexia [Unknown]
  - Vomiting [Unknown]
  - Cough [Unknown]
  - Abdominal pain upper [Unknown]
  - General physical health deterioration [Unknown]
  - Dizziness [Unknown]
  - Nausea [Unknown]
  - Diarrhoea [Unknown]
  - Epistaxis [Unknown]
